FAERS Safety Report 13653332 (Version 1)
Quarter: 2017Q2

REPORT INFORMATION
  Report Type: Spontaneous
  Country: US (occurrence: US)
  Receive Date: 20170614
  Receipt Date: 20170614
  Transmission Date: 20170830
  Serious: No
  Sender: FDA-Public Use
  Company Number: US-ROCHE-1010892

PATIENT
  Age: 43 Year
  Sex: Female
  Weight: 90.9 kg

DRUGS (3)
  1. VITAMINS [Concomitant]
     Active Substance: VITAMINS
  2. IRON [Concomitant]
     Active Substance: IRON
  3. XELODA [Suspect]
     Active Substance: CAPECITABINE
     Indication: COLON CANCER
     Route: 048
     Dates: start: 20111019

REACTIONS (2)
  - Onychoclasis [Unknown]
  - Headache [Unknown]

NARRATIVE: CASE EVENT DATE: 20111028
